FAERS Safety Report 9192290 (Version 1)
Quarter: 2013Q1

REPORT INFORMATION
  Report Type: Report from Study
  Country: US (occurrence: US)
  Receive Date: 20130327
  Receipt Date: 20130327
  Transmission Date: 20140127
  Serious: Yes (Life-Threatening)
  Sender: FDA-Public Use
  Company Number: US-JNJFOC-20130312266

PATIENT
  Age: 15 Year
  Sex: Female
  Weight: 43.7 kg

DRUGS (9)
  1. REMICADE [Suspect]
     Indication: INFLAMMATORY BOWEL DISEASE
     Route: 042
     Dates: start: 20111215
  2. 5-ASA [Concomitant]
     Route: 048
  3. ALBUTEROL [Concomitant]
     Route: 065
  4. MULTIVITAMINS [Concomitant]
     Route: 065
  5. ZYRTEC [Concomitant]
     Route: 065
  6. PRILOSEC [Concomitant]
     Route: 065
  7. VITAMIN D [Concomitant]
     Route: 065
  8. PREVACID [Concomitant]
     Route: 065
  9. ZOFRAN [Concomitant]
     Route: 065

REACTIONS (1)
  - Asthma [Recovered/Resolved]
